FAERS Safety Report 11857647 (Version 1)
Quarter: 2015Q4

REPORT INFORMATION
  Report Type: Spontaneous
  Country: US (occurrence: None)
  Receive Date: 20151221
  Receipt Date: 20151221
  Transmission Date: 20160305
  Serious: Yes (Life-Threatening, Other)
  Sender: FDA-Public Use
  Company Number: None

PATIENT
  Age: 55 Year
  Sex: Male
  Weight: 151.5 kg

DRUGS (1)
  1. ALTEPLASE [Suspect]
     Active Substance: ALTEPLASE
     Indication: CEREBROVASCULAR ACCIDENT
     Route: 042
     Dates: start: 20151217, end: 20151217

REACTIONS (4)
  - Anaphylactic reaction [None]
  - Hypotension [None]
  - Mood altered [None]
  - Unresponsive to stimuli [None]

NARRATIVE: CASE EVENT DATE: 20151217
